FAERS Safety Report 4980952-1 (Version None)
Quarter: 2006Q2

REPORT INFORMATION
  Report Type: 
  Country: None (occurrence: None)
  Receive Date: 20060418
  Receipt Date: 20060329
  Transmission Date: 20061013
  Serious: Yes (Other)
  Sender: FDA-Public Use
  Company Number: USA030843134

PATIENT
  Age: 56 Year
  Sex: Female
  Weight: 59.4 kg

DRUGS (14)
  1. FORTEO [Suspect]
     Indication: OSTEOPOROSIS
     Dosage: 20  UG, DAILY (1/D)
     Dates: start: 20030724
  2. PREVACID [Concomitant]
  3. CITRACAL (CALCIUM CITRATE) [Concomitant]
  4. CLARINEX [Concomitant]
  5. LIMBITROL [Concomitant]
  6. VITAMIN B12 [Concomitant]
  7. CARAFATE [Concomitant]
  8. AMITRIPTYLINE (AMITRIPTYLINE) [Concomitant]
  9. PULMICORT [Concomitant]
  10. NASONEX [Concomitant]
  11. CLARINEX (LORATADINE, PSEUDOEPHEDRINE SULFATE) [Concomitant]
  12. MAXAIR [Concomitant]
  13. NORVASC [Concomitant]
  14. CLUCOSAMINE (GLUCOSAMINE) [Concomitant]

REACTIONS (24)
  - ANXIETY [None]
  - ARTHRALGIA [None]
  - BACK INJURY [None]
  - BACK PAIN [None]
  - BONE PAIN [None]
  - BURNING SENSATION [None]
  - COORDINATION ABNORMAL [None]
  - DYSSTASIA [None]
  - GAIT DISTURBANCE [None]
  - INJECTION SITE BRUISING [None]
  - INJECTION SITE ERYTHEMA [None]
  - INJECTION SITE HAEMORRHAGE [None]
  - INJECTION SITE IRRITATION [None]
  - INJECTION SITE PAIN [None]
  - INSOMNIA [None]
  - INTERVERTEBRAL DISC PROTRUSION [None]
  - LIGAMENT RUPTURE [None]
  - LUMBAR RADICULOPATHY [None]
  - MUSCLE SPASMS [None]
  - OSTEOARTHRITIS [None]
  - OSTEOARTHROPATHY [None]
  - PHARMACEUTICAL PRODUCT COMPLAINT [None]
  - STRESS [None]
  - WRONG TECHNIQUE IN DRUG USAGE PROCESS [None]
